FAERS Safety Report 9636400 (Version 2)
Quarter: 2013Q4

REPORT INFORMATION
  Report Type: Spontaneous
  Country: US (occurrence: US)
  Receive Date: 20131021
  Receipt Date: 20131021
  Transmission Date: 20140711
  Serious: Yes (Hospitalization)
  Sender: FDA-Public Use
  Company Number: US-OTSUKA-US-2013-11363

PATIENT
  Age: 23 Year
  Sex: Male

DRUGS (8)
  1. ABILIFY MAINTENA [Suspect]
     Indication: SCHIZOAFFECTIVE DISORDER
     Dosage: 400 MG MILLIGRAM(S), UNK
     Route: 030
     Dates: start: 20130612
  2. ABILIFY MAINTENA [Suspect]
     Indication: BIPOLAR I DISORDER
  3. ABILIFY [Suspect]
     Indication: BIPOLAR I DISORDER
     Dosage: 2 MG MILLIGRAM(S), UNK
     Route: 048
     Dates: start: 201303
  4. ABILIFY [Suspect]
     Indication: SCHIZOAFFECTIVE DISORDER
     Dosage: 15 MG MILLIGRAM(S), UNK
     Route: 048
     Dates: start: 20130613
  5. DEPAKOTE ER [Concomitant]
     Indication: PRODUCT USED FOR UNKNOWN INDICATION
  6. SEROQUEL XR [Concomitant]
     Indication: BIPOLAR I DISORDER
  7. SEROQUEL XR [Concomitant]
     Indication: SCHIZOAFFECTIVE DISORDER
  8. AMBIEN [Concomitant]
     Indication: PRODUCT USED FOR UNKNOWN INDICATION

REACTIONS (3)
  - Bipolar I disorder [Not Recovered/Not Resolved]
  - Schizoaffective disorder [Not Recovered/Not Resolved]
  - Off label use [Unknown]
